FAERS Safety Report 7718221-9 (Version None)
Quarter: 2011Q3

REPORT INFORMATION
  Report Type: 
  Country: None (occurrence: None)
  Receive Date: 20110830
  Receipt Date: 20110822
  Transmission Date: 20111222
  Serious: Yes (Other)
  Sender: FDA-Public Use
  Company Number: PHEH2011US00807

PATIENT
  Sex: Female

DRUGS (24)
  1. ACYCLOVIR [Concomitant]
     Dosage: 400 MG, BID
  2. PLAQUENIL [Concomitant]
     Dosage: 200 MG, BID
  3. ASCORBIC ACID [Concomitant]
     Dosage: 500 MG, UNK
  4. SANDOSTATIN LAR [Suspect]
     Dosage: 40 MG, UNK
  5. CALCIUM PLUS [Concomitant]
  6. VICODIN [Concomitant]
  7. IMITREX [Concomitant]
     Dosage: 50 MG, UNK
  8. VITAMIN E [Concomitant]
     Dosage: 400 U, UNK
  9. ASPIRIN [Concomitant]
     Dosage: 81 MG, UNK
  10. CARBAMAZEPINE [Concomitant]
     Dosage: 200 MG ONE TABLET IN THE MORNING AND 1.5 TABLET IN THE EVENING.
  11. MOBIC [Concomitant]
     Dosage: 7.5 MG, BID
  12. LASIX [Concomitant]
     Dosage: 40 MG, BID
  13. VITAMIN D [Concomitant]
     Dosage: 2000 U, UNK
  14. CYCLOSPORINE [Concomitant]
  15. MULTI-VITAMINS [Concomitant]
     Dosage: 02 DF, UNK
  16. MIRALAX [Concomitant]
  17. OCTREOTIDE ACETATE [Suspect]
     Dosage: 50 UG, TID
     Route: 058
     Dates: start: 20110501
  18. SANDOSTATIN LAR [Suspect]
     Dosage: 20 MG, QMO
     Route: 030
     Dates: start: 20110621
  19. CYMBALTA [Concomitant]
     Dosage: 30 MG, UNK
  20. ESTRADIOL [Concomitant]
     Dosage: 01 MG, UNK
  21. POTASSIUM CHLORIDE [Concomitant]
     Dosage: 10 MEQ, UNK
  22. LOVASTATIN [Concomitant]
     Dosage: 80 MG, UNK
  23. REGLAN [Concomitant]
  24. SPIRONOLACTONE [Concomitant]
     Dosage: 25 MG, UNK

REACTIONS (8)
  - ARTHRITIS [None]
  - ARTHRALGIA [None]
  - WEIGHT INCREASED [None]
  - HYPERHIDROSIS [None]
  - DIARRHOEA [None]
  - DIZZINESS [None]
  - HEADACHE [None]
  - FATIGUE [None]
